FAERS Safety Report 6124340-3 (Version None)
Quarter: 2009Q1

REPORT INFORMATION
  Report Type: 
  Country: None (occurrence: None)
  Receive Date: 20090319
  Receipt Date: 20090312
  Transmission Date: 20090719
  Serious: Yes (Other)
  Sender: FDA-Public Use
  Company Number: CH-AVENTIS-200911252EU

PATIENT
  Age: 76 Year
  Sex: Male

DRUGS (7)
  1. CLEXANE [Suspect]
     Indication: PROPHYLAXIS
     Dosage: DOSE: UNK
     Route: 058
     Dates: start: 20081101, end: 20081101
  2. TRILEPTAL [Suspect]
     Indication: TRIGEMINAL NEURALGIA
     Route: 048
     Dates: start: 20040101, end: 20081201
  3. NEXIUM [Suspect]
     Dosage: DOSE: 1DF
     Route: 048
     Dates: start: 20081101
  4. DAFALGAN                           /00020001/ [Suspect]
     Dosage: DOSE: UNK
     Dates: start: 20081101
  5. BRUFEN [Suspect]
     Dosage: DOSE: UNK
     Dates: start: 20081101
  6. ZOFRAN [Suspect]
     Dosage: DOSE: UNK
     Dates: start: 20081101
  7. CALCIMAGON                         /00108001/ [Concomitant]
     Route: 048

REACTIONS (2)
  - IRIDOCYCLITIS [None]
  - MYOPIA [None]
